FAERS Safety Report 9408069 (Version 4)
Quarter: 2013Q3

REPORT INFORMATION
  Report Type: Spontaneous
  Country: DE (occurrence: DE)
  Receive Date: 20130718
  Receipt Date: 20130826
  Transmission Date: 20140515
  Serious: Yes (Other)
  Sender: FDA-Public Use
  Company Number: DE-JNJFOC-20130706424

PATIENT
  Age: 76 Year
  Sex: Female
  Weight: 80 kg

DRUGS (7)
  1. XARELTO [Suspect]
     Indication: CEREBROVASCULAR ACCIDENT PROPHYLAXIS
     Route: 048
     Dates: start: 201208
  2. XARELTO [Suspect]
     Indication: ATRIAL FIBRILLATION
     Route: 048
     Dates: start: 201208
  3. FLECAINIDE [Concomitant]
     Route: 065
  4. BETAHISTINE [Concomitant]
     Route: 065
  5. BISOHEXAL (BISOPROLOL HEMIFUMARATE) [Concomitant]
     Route: 065
  6. VOTUM [Concomitant]
     Route: 065
  7. BUDES [Concomitant]
     Route: 065

REACTIONS (15)
  - Atrial fibrillation [Unknown]
  - Vitreous degeneration [Unknown]
  - Asthenia [Recovering/Resolving]
  - Visual impairment [Recovering/Resolving]
  - Malaise [Unknown]
  - Visual impairment [Unknown]
  - Epistaxis [Recovering/Resolving]
  - Headache [Unknown]
  - Tremor [Recovering/Resolving]
  - Dizziness [Unknown]
  - Pain in extremity [Unknown]
  - Photopsia [Unknown]
  - Feeling abnormal [Unknown]
  - Visual impairment [Recovering/Resolving]
  - Headache [Recovering/Resolving]
